FAERS Safety Report 4931016-4 (Version None)
Quarter: 2006Q1

REPORT INFORMATION
  Report Type: 
  Country: None (occurrence: None)
  Receive Date: 20060127
  Receipt Date: 20051118
  Transmission Date: 20060701
  Serious: Yes (Other)
  Sender: FDA-Public Use
  Company Number: 2005159086

PATIENT
  Sex: Male

DRUGS (3)
  1. LYRICA [Suspect]
     Indication: ILL-DEFINED DISORDER
     Dosage: UNKNOWN (50 MG, UNKNOWN)
     Route: 065
  2. LEXAPRO [Suspect]
     Indication: ILL-DEFINED DISORDER
     Dosage: 10 MG  UNKNOWN
     Route: 065
  3. WELLBUTRIN XL [Concomitant]

REACTIONS (1)
  - DRUG INEFFECTIVE [None]
